FAERS Safety Report 6259434-5 (Version None)
Quarter: 2009Q3

REPORT INFORMATION
  Report Type: 
  Country: None (occurrence: None)
  Receive Date: 20090708
  Receipt Date: 20070606
  Transmission Date: 20100115
  Serious: Yes (Other)
  Sender: FDA-Public Use
  Company Number: US-ASTRAZENECA-2006UW25053

PATIENT
  Age: 18006 Day
  Sex: Male
  Weight: 104.3 kg

DRUGS (15)
  1. SEROQUEL [Suspect]
     Indication: DEPRESSION
     Route: 048
     Dates: start: 20030408
  2. SEROQUEL [Suspect]
     Indication: SLEEP DISORDER
     Route: 048
     Dates: start: 20030408
  3. SEROQUEL [Suspect]
     Route: 048
     Dates: start: 20040429
  4. SEROQUEL [Suspect]
     Route: 048
     Dates: start: 20040429
  5. SEROQUEL [Suspect]
     Route: 048
     Dates: start: 20040804
  6. SEROQUEL [Suspect]
     Route: 048
     Dates: start: 20040804
  7. SEROQUEL [Suspect]
     Route: 048
     Dates: start: 20050727, end: 20050730
  8. SEROQUEL [Suspect]
     Route: 048
     Dates: start: 20050727, end: 20050730
  9. ZOCOR [Concomitant]
     Route: 065
  10. ASPIRIN [Concomitant]
     Route: 065
  11. GLUCOVANCE [Concomitant]
     Route: 048
  12. ATARAX [Concomitant]
     Route: 065
  13. BENADRYL [Concomitant]
     Route: 048
  14. NEURONTIN [Concomitant]
     Route: 048
  15. TYLENOL (CAPLET) [Concomitant]
     Route: 048

REACTIONS (2)
  - DIABETES MELLITUS [None]
  - NEUROPATHY PERIPHERAL [None]
